FAERS Safety Report 9433321 (Version 1)
Quarter: 2013Q3

REPORT INFORMATION
  Report Type: Spontaneous
  Country: DE (occurrence: DE)
  Receive Date: 20130731
  Receipt Date: 20130731
  Transmission Date: 20140515
  Serious: Yes (Congenital Anomaly, Other)
  Sender: FDA-Public Use
  Company Number: DE-BRISTOL-MYERS SQUIBB COMPANY-19129949

PATIENT
  Age: 1 Day
  Sex: Male
  Weight: 2.8 kg

DRUGS (6)
  1. PRAVASTATIN SODIUM [Suspect]
     Indication: HYPERCHOLESTEROLAEMIA
     Route: 064
  2. ACETYLSALICYLIC ACID [Suspect]
     Indication: ISCHAEMIC HEART DISEASE PROPHYLAXIS
     Route: 064
  3. CLOPIDOGREL BISULFATE [Suspect]
     Indication: ISCHAEMIC HEART DISEASE PROPHYLAXIS
     Route: 064
  4. RAMIPRIL [Suspect]
     Indication: HYPERTENSION
     Route: 064
  5. NEPRESOL [Suspect]
     Indication: HYPERTENSION
     Route: 064
  6. METOPROLOL [Suspect]
     Indication: HYPERTENSION
     Route: 064

REACTIONS (5)
  - Aortic valve stenosis [Recovered/Resolved with Sequelae]
  - Aorta hypoplasia [Recovered/Resolved with Sequelae]
  - Coarctation of the aorta [Recovered/Resolved with Sequelae]
  - Atrial septal defect [Recovered/Resolved with Sequelae]
  - Mitral valve hypoplasia [Recovered/Resolved with Sequelae]
